FAERS Safety Report 25742718 (Version 7)
Quarter: 2025Q4

REPORT INFORMATION
  Report Type: Spontaneous
  Country: US (occurrence: US)
  Receive Date: 20250830
  Receipt Date: 20251120
  Transmission Date: 20260118
  Serious: Yes (Other)
  Sender: UNITED THERAPEUTICS
  Company Number: US-UNITED THERAPEUTICS-UNT-2025-028713

PATIENT
  Sex: Male
  Weight: 77.551 kg

DRUGS (27)
  1. TYVASO DPI [Suspect]
     Active Substance: TREPROSTINIL
     Indication: Pulmonary arterial hypertension
     Dosage: 32 ?G, QID
     Dates: start: 2025, end: 2025
  2. TYVASO DPI [Suspect]
     Active Substance: TREPROSTINIL
     Indication: Idiopathic pulmonary fibrosis
     Dosage: 16 ?G, QID
     Dates: start: 2025
  3. TYVASO DPI [Suspect]
     Active Substance: TREPROSTINIL
     Dosage: 32 ?G, QID
     Dates: start: 2025
  4. TYVASO DPI [Suspect]
     Active Substance: TREPROSTINIL
     Dosage: UNK
  5. TYVASO DPI [Suspect]
     Active Substance: TREPROSTINIL
     Indication: Idiopathic pulmonary fibrosis
     Dosage: UNK
  6. TYVASO DPI [Suspect]
     Active Substance: TREPROSTINIL
     Indication: Pulmonary arterial hypertension
  7. TYVASO DPI [Suspect]
     Active Substance: TREPROSTINIL
     Indication: Pulmonary arterial hypertension
     Dosage: UNK
  8. TYVASO DPI [Suspect]
     Active Substance: TREPROSTINIL
     Indication: Idiopathic pulmonary fibrosis
  9. PIRFENIDONE [Suspect]
     Active Substance: PIRFENIDONE
     Indication: Product used for unknown indication
     Dosage: UNK
  10. PIRFENIDONE [Suspect]
     Active Substance: PIRFENIDONE
     Dosage: UNK (RESTARTED)
  11. PIRFENIDONE [Suspect]
     Active Substance: PIRFENIDONE
     Dosage: 267 MG, QD
     Dates: start: 2025, end: 2025
  12. PIRFENIDONE [Suspect]
     Active Substance: PIRFENIDONE
     Dosage: UNK
  13. CRESTOR [Suspect]
     Active Substance: ROSUVASTATIN CALCIUM
     Indication: Product used for unknown indication
     Dosage: UNK
  14. CRESTOR [Suspect]
     Active Substance: ROSUVASTATIN CALCIUM
     Dosage: UNK (RESTARTED)
  15. PLAVIX [Suspect]
     Active Substance: CLOPIDOGREL BISULFATE
     Indication: Product used for unknown indication
     Dosage: UNK
  16. CLONAZEPAM [Concomitant]
     Active Substance: CLONAZEPAM
     Indication: Product used for unknown indication
     Dosage: UNK
  17. PROTONIX [Concomitant]
     Active Substance: PANTOPRAZOLE SODIUM
     Indication: Nausea
     Dosage: UNK
  18. PROTONIX [Concomitant]
     Active Substance: PANTOPRAZOLE SODIUM
     Indication: Abdominal pain upper
  19. PROTONIX [Concomitant]
     Active Substance: PANTOPRAZOLE SODIUM
     Indication: Dyspepsia
  20. GABAPENTIN [Concomitant]
     Active Substance: GABAPENTIN
     Indication: Product used for unknown indication
     Dosage: UNK
  21. SUCRALFATE [Concomitant]
     Active Substance: SUCRALFATE
     Indication: Nausea
     Dosage: UNK
  22. SUCRALFATE [Concomitant]
     Active Substance: SUCRALFATE
     Indication: Abdominal pain upper
  23. SUCRALFATE [Concomitant]
     Active Substance: SUCRALFATE
     Indication: Dyspepsia
  24. CITALOPRAM HYDROBROMIDE [Concomitant]
     Active Substance: CITALOPRAM HYDROBROMIDE
     Indication: Product used for unknown indication
     Dosage: UNK
  25. VITAMINS [Concomitant]
     Active Substance: VITAMINS
     Indication: Product used for unknown indication
     Dosage: UNK
  26. OXYGEN [Concomitant]
     Active Substance: OXYGEN
     Indication: Product used for unknown indication
     Dosage: UNK
  27. ASPIRIN [Concomitant]
     Active Substance: ASPIRIN
     Indication: Product used for unknown indication
     Dosage: UNK

REACTIONS (7)
  - Coronary artery occlusion [Recovered/Resolved]
  - Throat irritation [Unknown]
  - Cough [Unknown]
  - Nausea [Unknown]
  - Abdominal pain upper [Unknown]
  - Dyspepsia [Not Recovered/Not Resolved]
  - Decreased immune responsiveness [Recovering/Resolving]

NARRATIVE: CASE EVENT DATE: 20250101
